FAERS Safety Report 18979823 (Version 17)
Quarter: 2022Q1

REPORT INFORMATION
  Report Type: Report from Study
  Country: DK (occurrence: None)
  Receive Date: 20210308
  Receipt Date: 20220322
  Transmission Date: 20220423
  Serious: Yes (Hospitalization)
  Sender: FDA-Public Use
  Company Number: DK-EISAI MEDICAL RESEARCH-EC-2021-088386

PATIENT
  Age: 57 Year
  Sex: Female
  Weight: 58.5 kg

DRUGS (11)
  1. LENVATINIB [Suspect]
     Active Substance: LENVATINIB
     Indication: Squamous cell carcinoma of head and neck
     Route: 048
     Dates: start: 20210205, end: 20210205
  2. PEMBROLIZUMAB [Suspect]
     Active Substance: PEMBROLIZUMAB
     Indication: Squamous cell carcinoma of head and neck
     Route: 041
     Dates: start: 20210205, end: 20210205
  3. LEVOTHYROXINE SODIUM [Concomitant]
     Active Substance: LEVOTHYROXINE SODIUM
     Dates: start: 20200331, end: 20210503
  4. FENTANYL [Concomitant]
     Active Substance: FENTANYL
     Dates: start: 20200608, end: 20210224
  5. ACETAMINOPHEN [Concomitant]
     Active Substance: ACETAMINOPHEN
     Dates: start: 20200720, end: 20210305
  6. SODIUM PICOSULFATE [Concomitant]
     Active Substance: SODIUM PICOSULFATE
     Dates: start: 20200826
  7. LACTULOSE [Concomitant]
     Active Substance: LACTULOSE
     Dates: start: 20200910, end: 20210222
  8. PREGABALIN [Concomitant]
     Active Substance: PREGABALIN
     Dates: start: 20201210, end: 20210126
  9. METHADONE HYDROCHLORIDE [Concomitant]
     Active Substance: METHADONE HYDROCHLORIDE
     Dates: start: 20201223, end: 20210202
  10. DOMPERIDONE [Concomitant]
     Active Substance: DOMPERIDONE
     Dates: start: 20210205, end: 20210209
  11. LOPERAMIDE [Concomitant]
     Active Substance: LOPERAMIDE
     Dates: start: 20210205, end: 20210209

REACTIONS (3)
  - Oropharyngeal pain [Not Recovered/Not Resolved]
  - Weight decreased [Recovering/Resolving]
  - Facial pain [Not Recovered/Not Resolved]

NARRATIVE: CASE EVENT DATE: 20210208
